FAERS Safety Report 9604415 (Version 2)
Quarter: 2013Q4

REPORT INFORMATION
  Report Type: Spontaneous
  Country: US (occurrence: US)
  Receive Date: 20131008
  Receipt Date: 20131119
  Transmission Date: 20140711
  Serious: No
  Sender: FDA-Public Use
  Company Number: US-VERTEX PHARMACEUTICALS INC-2013-010159

PATIENT
  Age: 32 Year
  Sex: Male
  Weight: 109 kg

DRUGS (6)
  1. INCIVEK [Suspect]
     Indication: HEPATITIS C
  2. PEGASYS [Suspect]
     Indication: HEPATITIS C
  3. RIBAVIRIN [Suspect]
     Indication: HEPATITIS C
  4. VISTARIL [Concomitant]
  5. ALBUTEROL [Concomitant]
  6. HEPATITIS A VACCINE [Concomitant]

REACTIONS (8)
  - Alopecia [Unknown]
  - Dry mouth [Unknown]
  - Mood swings [Unknown]
  - Rash [Recovered/Resolved]
  - Dry skin [Unknown]
  - Anal pruritus [Recovered/Resolved]
  - Anal fissure [Recovered/Resolved]
  - Anorectal discomfort [Unknown]
